FAERS Safety Report 18342025 (Version 1)
Quarter: 2020Q4

REPORT INFORMATION
  Report Type: Spontaneous
  Country: US (occurrence: US)
  Receive Date: 20201005
  Receipt Date: 20201005
  Transmission Date: 20210113
  Serious: Yes (Death, Other)
  Sender: FDA-Public Use
  Company Number: US-REGENERON PHARMACEUTICALS, INC.-2020-71234

PATIENT

DRUGS (4)
  1. EYLEA [Suspect]
     Active Substance: AFLIBERCEPT
     Dosage: BOTH EYES, STANDARD DOSE EVERY OTHER MONTH, LAST DOSE
     Route: 031
     Dates: start: 20200601, end: 20200601
  2. EYLEA [Suspect]
     Active Substance: AFLIBERCEPT
     Indication: DIABETIC RETINOPATHY
     Dosage: STANDARD DOSE
     Route: 031
  3. EYLEA [Suspect]
     Active Substance: AFLIBERCEPT
     Indication: DIABETIC RETINAL OEDEMA
     Dosage: STANDARD DOSE, EVERY MONTH
     Route: 031
     Dates: start: 20180928
  4. EYLEA [Suspect]
     Active Substance: AFLIBERCEPT
     Dosage: STANDARD DOSE, EVERY OTHER MONTH
     Route: 031

REACTIONS (3)
  - Death [Fatal]
  - Myocardial infarction [Unknown]
  - Illness [Unknown]
